FAERS Safety Report 4621653-9 (Version None)
Quarter: 2005Q1

REPORT INFORMATION
  Report Type: 
  Country: None (occurrence: None)
  Receive Date: 20050329
  Receipt Date: 20050318
  Transmission Date: 20050727
  Serious: Yes (Hospitalization, Other)
  Sender: FDA-Public Use
  Company Number: KII-2005-0015563

PATIENT
  Sex: Male

DRUGS (4)
  1. OXYCODONE HCL [Suspect]
     Dosage: ORAL
     Route: 048
  2. ACETAMINOPHEN AND OXYCODONE HCL [Suspect]
     Dosage: ORAL
     Route: 048
  3. BENZODIAZEPINE DERIVATIVES [Suspect]
     Dosage: ORAL
     Route: 048
  4. ETHANOL (ETHANOL) [Suspect]
     Dosage: ORAL
     Route: 048

REACTIONS (9)
  - BLOOD MAGNESIUM ABNORMAL [None]
  - BLOOD POTASSIUM ABNORMAL [None]
  - DRUG WITHDRAWAL SYNDROME [None]
  - HYPOTENSION [None]
  - HYPOTHERMIA [None]
  - INTENTIONAL MISUSE [None]
  - LOSS OF CONSCIOUSNESS [None]
  - RESTLESSNESS [None]
  - SUICIDE ATTEMPT [None]
